FAERS Safety Report 12841732 (Version 1)
Quarter: 2016Q4

REPORT INFORMATION
  Report Type: Spontaneous
  Country: CZ (occurrence: CZ)
  Receive Date: 20161012
  Receipt Date: 20161012
  Transmission Date: 20170207
  Serious: Yes (Life-Threatening, Hospitalization, Other)
  Sender: FDA-Public Use
  Company Number: CZ-ELI_LILLY_AND_COMPANY-CZ201610002757

PATIENT
  Age: 57 Year
  Sex: Male

DRUGS (13)
  1. MEDROL [Concomitant]
     Active Substance: METHYLPREDNISOLONE
     Dosage: 16 MG, UNK
  2. CONTROLOC                          /01263201/ [Concomitant]
     Dosage: 40 MG, UNK
  3. XARELTO [Suspect]
     Active Substance: RIVAROXABAN
     Indication: ANTICOAGULANT THERAPY
     Dosage: 20 MG, UNKNOWN
     Route: 065
  4. VIGANTOL                           /00318501/ [Concomitant]
     Active Substance: CHOLECALCIFEROL
     Dosage: 25 GTT, UNK
  5. VENDAL /00036303/ [Suspect]
     Active Substance: MORPHINE HYDROCHLORIDE
     Indication: PRODUCT USED FOR UNKNOWN INDICATION
     Dosage: 60 MG, UNKNOWN
     Route: 065
  6. FORSTEO [Suspect]
     Active Substance: TERIPARATIDE
     Indication: OSTEOPOROSIS
     Dosage: 20 UG, QD
     Route: 058
     Dates: start: 20151208, end: 20160911
  7. CELEBREX [Concomitant]
     Active Substance: CELECOXIB
  8. TRITACE [Suspect]
     Active Substance: RAMIPRIL
     Indication: PRODUCT USED FOR UNKNOWN INDICATION
     Dosage: UNK, UNKNOWN
     Route: 065
  9. AGEN [Concomitant]
     Dosage: 5 MG, UNK
  10. CALTRATE                           /00944201/ [Concomitant]
     Dosage: 600 MG, UNK
  11. FORADIL [Concomitant]
     Active Substance: FORMOTEROL FUMARATE
  12. ATROVENT [Concomitant]
     Active Substance: IPRATROPIUM BROMIDE
  13. BRETARIS GENUAIR [Concomitant]
     Active Substance: ACLIDINIUM BROMIDE

REACTIONS (6)
  - Intestinal haemorrhage [Unknown]
  - Chronic obstructive pulmonary disease [Unknown]
  - Myalgia [Recovered/Resolved]
  - Acute respiratory failure [Unknown]
  - Rheumatoid arthritis [Unknown]
  - Dizziness [Not Recovered/Not Resolved]

NARRATIVE: CASE EVENT DATE: 201607
